FAERS Safety Report 11691238 (Version 1)
Quarter: 2015Q4

REPORT INFORMATION
  Report Type: Spontaneous
  Country: ZA (occurrence: ZA)
  Receive Date: 20151102
  Receipt Date: 20151102
  Transmission Date: 20160304
  Serious: Yes (Other)
  Sender: FDA-Public Use
  Company Number: ZA-BAYER-2015-453101

PATIENT
  Age: 39 Year
  Sex: Male

DRUGS (5)
  1. CIPROFLOXACIN BETAIN [Suspect]
     Active Substance: CIPROFLOXACIN
     Indication: DYSURIA
     Dosage: UNK
     Dates: start: 2009
  2. CIPROFLOXACIN BETAIN [Suspect]
     Active Substance: CIPROFLOXACIN
     Indication: DYSURIA
     Dosage: UNK
     Dates: start: 2015
  3. CLOPIDOGREL [Concomitant]
     Active Substance: CLOPIDOGREL BISULFATE
     Dosage: UNK
  4. ASPIRIN. [Concomitant]
     Active Substance: ASPIRIN
     Dosage: UNK
  5. ATENOLOL. [Concomitant]
     Active Substance: ATENOLOL
     Dosage: UNK

REACTIONS (2)
  - Kounis syndrome [None]
  - Off label use [None]
